FAERS Safety Report 22388127 (Version 1)
Quarter: 2023Q2

REPORT INFORMATION
  Report Type: Spontaneous
  Country: None (occurrence: FR)
  Receive Date: 20230531
  Receipt Date: 20230531
  Transmission Date: 20230722
  Serious: Yes (Death)
  Sender: FDA-Public Use
  Company Number: FR-B.Braun Medical Inc.-2142158

PATIENT
  Age: 42 Year
  Sex: Male

DRUGS (12)
  1. ACETAMINOPHEN [Suspect]
     Active Substance: ACETAMINOPHEN
  2. OXAZEPAM [Suspect]
     Active Substance: OXAZEPAM
  3. DIAZEPAM [Suspect]
     Active Substance: DIAZEPAM
  4. BENZOYLECGONINE [Suspect]
     Active Substance: BENZOYLECGONINE
  5. TIAPRIDE HYDROCHLORIDE [Suspect]
     Active Substance: TIAPRIDE HYDROCHLORIDE
  6. LEVAMISOLE [Suspect]
     Active Substance: LEVAMISOLE
  7. AMOXAPINE [Suspect]
     Active Substance: AMOXAPINE
  8. 6-ACETYLMORPHINE [Suspect]
     Active Substance: 6-ACETYLMORPHINE
  9. CODEINE [Suspect]
     Active Substance: CODEINE
  10. NOSCAPINE [Suspect]
     Active Substance: NOSCAPINE
  11. COCAINE [Suspect]
     Active Substance: COCAINE
  12. MORPHINE [Suspect]
     Active Substance: MORPHINE

REACTIONS (3)
  - Poisoning [Fatal]
  - Asphyxia [Fatal]
  - Drug abuse [Fatal]
